FAERS Safety Report 9586573 (Version 1)
Quarter: 2013Q3

REPORT INFORMATION
  Report Type: Spontaneous
  Country: CN (occurrence: None)
  Receive Date: 20130926
  Receipt Date: 20130926
  Transmission Date: 20140515
  Serious: Yes (Hospitalization)
  Sender: FDA-Public Use
  Company Number: 2013-01397

PATIENT
  Age: 47 Year
  Sex: Male
  Weight: 48.5 kg

DRUGS (1)
  1. VALPROIC ACID [Suspect]
     Dosage: UNKNOWN (UNKNOWN, UNKNOWN) , UNKNOWN

REACTIONS (2)
  - Convulsion [None]
  - Condition aggravated [None]
